FAERS Safety Report 8764094 (Version 2)
Quarter: 2012Q4

REPORT INFORMATION
  Report Type: 
  Country: DK (occurrence: DK)
  Receive Date: 20120831
  Receipt Date: 20121113
  Transmission Date: 20130627
  Serious: Yes (Life-Threatening, Hospitalization)
  Sender: FDA-Public Use
  Company Number: DK-NOVOPROD-358864

PATIENT
  Age: 75 Year
  Sex: Female
  Weight: 72 kg

DRUGS (9)
  1. VICTOZA [Suspect]
     Indication: DIABETES MELLITUS
     Dosage: 1.2 mg, qd
     Route: 058
     Dates: start: 201011, end: 201205
  2. EMCONCOR [Concomitant]
     Indication: HYPERTENSION
     Dosage: UNK
     Route: 048
  3. COZAAR COMP. FORTE [Concomitant]
     Dosage: 100+25 mg
  4. SIMVASTATIN [Concomitant]
     Indication: HYPERCHOLESTEROLAEMIA
  5. ELTROXIN [Concomitant]
     Indication: MYXOEDEMA
  6. MAREVAN [Concomitant]
     Indication: ATRIAL FIBRILLATION
     Dosage: 2.5 mg
  7. LANSOPRAZOL [Concomitant]
     Indication: ABDOMINAL DISCOMFORT
  8. PINEX                              /00020001/ [Concomitant]
     Indication: PAIN
  9. DIGOXIN [Concomitant]
     Indication: ATRIAL FIBRILLATION

REACTIONS (2)
  - Pancreatic carcinoma [Not Recovered/Not Resolved]
  - Abdominal pain upper [Not Recovered/Not Resolved]
